FAERS Safety Report 8902524 (Version 1)
Quarter: 2012Q4

REPORT INFORMATION
  Report Type: 
  Country: DE (occurrence: DE)
  Receive Date: 20121112
  Receipt Date: 20121112
  Transmission Date: 20130627
  Serious: Yes (Other)
  Sender: FDA-Public Use
  Company Number: DE-PFIZER INC-2012248352

PATIENT
  Age: 67 Year
  Sex: Female

DRUGS (1)
  1. TOVIAZ [Suspect]
     Indication: IRRITABLE BLADDER
     Dosage: 8 mg, 1x/day
     Route: 048
     Dates: start: 20120928, end: 20121005

REACTIONS (9)
  - Visual impairment [Recovered/Resolved]
  - Hearing impaired [Recovered/Resolved]
  - Dizziness [Recovered/Resolved]
  - Somnolence [Recovered/Resolved]
  - Sleep disorder [Recovered/Resolved]
  - Cough [Recovered/Resolved]
  - White blood cell count abnormal [Unknown]
  - Abdominal pain upper [Recovered/Resolved]
  - Drug ineffective [Recovered/Resolved]
